FAERS Safety Report 7893343-0 (Version None)
Quarter: 2011Q4

REPORT INFORMATION
  Report Type: 
  Country: None (occurrence: None)
  Receive Date: 20111104
  Receipt Date: 20111024
  Transmission Date: 20120403
  Serious: Yes (Other)
  Sender: FDA-Public Use
  Company Number: JP-UCBSA-036556

PATIENT
  Age: 45 Year
  Sex: Female

DRUGS (2)
  1. XYZAL [Suspect]
     Indication: DERMATITIS ATOPIC
     Route: 048
     Dates: start: 20101210, end: 20110525
  2. RINDERON-VG [Concomitant]
     Indication: DERMATITIS
     Route: 061
     Dates: start: 20101210

REACTIONS (7)
  - LIVER FUNCTION TEST ABNORMAL [None]
  - WEIGHT INCREASED [None]
  - MALAISE [None]
  - SOMNOLENCE [None]
  - OEDEMA PERIPHERAL [None]
  - HEPATIC STEATOSIS [None]
  - OBESITY [None]
